FAERS Safety Report 18940919 (Version 1)
Quarter: 2021Q1

REPORT INFORMATION
  Report Type: Spontaneous
  Country: US (occurrence: US)
  Receive Date: 20210225
  Receipt Date: 20210225
  Transmission Date: 20210420
  Serious: Yes (Hospitalization)
  Sender: FDA-Public Use
  Company Number: None

PATIENT
  Age: 42 Year
  Sex: Female
  Weight: 56.7 kg

DRUGS (3)
  1. ODACTRA [Concomitant]
     Active Substance: DERMATOPHAGOIDES FARINAE\DERMATOPHAGOIDES PTERONYSSINUS
  2. MIRENA [Suspect]
     Active Substance: LEVONORGESTREL
     Dates: start: 20160930, end: 20210216
  3. LEVOTHYROXINE 88 MCG [Concomitant]
     Active Substance: LEVOTHYROXINE

REACTIONS (5)
  - Maternal drugs affecting foetus [None]
  - Fallopian tube perforation [None]
  - Pregnancy with contraceptive device [None]
  - Ectopic pregnancy [None]
  - Maternal exposure timing unspecified [None]

NARRATIVE: CASE EVENT DATE: 20210216
